FAERS Safety Report 10062063 (Version 1)
Quarter: 2014Q2

REPORT INFORMATION
  Report Type: Spontaneous
  Country: US (occurrence: US)
  Receive Date: 20140407
  Receipt Date: 20140407
  Transmission Date: 20141212
  Serious: Yes (Hospitalization)
  Sender: FDA-Public Use
  Company Number: US-BIOGENIDEC-2014BI029985

PATIENT
  Age: 65 Year
  Sex: Male

DRUGS (4)
  1. TECFIDERA [Suspect]
     Indication: MULTIPLE SCLEROSIS
     Route: 048
     Dates: start: 20140313
  2. AMITRIPTYLINE HCL [Concomitant]
  3. B COMPLEX [Concomitant]
  4. ARICEPT [Concomitant]

REACTIONS (4)
  - Hypotension [Unknown]
  - Cystitis [Recovered/Resolved]
  - Muscle spasms [Not Recovered/Not Resolved]
  - Neuropathy peripheral [Not Recovered/Not Resolved]
